FAERS Safety Report 6521674-5 (Version None)
Quarter: 2009Q4

REPORT INFORMATION
  Report Type: 
  Country: None (occurrence: None)
  Receive Date: 20091230
  Receipt Date: 20091222
  Transmission Date: 20100525
  Serious: Yes (Death, Hospitalization)
  Sender: FDA-Public Use
  Company Number: PHHY2009JP58768

PATIENT
  Sex: Male
  Weight: 50 kg

DRUGS (3)
  1. ICL670A ICL+DISTAB [Suspect]
     Indication: ANAEMIA
     Dosage: 500 MG DAILY
     Route: 048
     Dates: start: 20090831, end: 20091001
  2. ICL670A ICL+DISTAB [Suspect]
     Indication: IRON OVERLOAD
     Dosage: 1000 MG DAILY
     Route: 048
     Dates: start: 20091002, end: 20091111
  3. RED BLOOD CELLS [Concomitant]
     Dosage: 2 UNITS EVERY WEEK
     Dates: start: 20090831, end: 20091118

REACTIONS (7)
  - ASTHENIA [None]
  - BLOOD PRESSURE DECREASED [None]
  - CARDIAC FAILURE [None]
  - CIRCULATORY COLLAPSE [None]
  - DIALYSIS [None]
  - PNEUMONIA [None]
  - PNEUMONIA BACTERIAL [None]
